FAERS Safety Report 20193823 (Version 2)
Quarter: 2022Q2

REPORT INFORMATION
  Report Type: Spontaneous
  Country: US (occurrence: US)
  Receive Date: 20211216
  Receipt Date: 20220428
  Transmission Date: 20220721
  Serious: No
  Sender: FDA-Public Use
  Company Number: US-SA-SAC20211215000333

PATIENT
  Age: 69 Year
  Sex: Male

DRUGS (1)
  1. AUBAGIO [Suspect]
     Active Substance: TERIFLUNOMIDE
     Indication: Multiple sclerosis
     Dosage: 7 MG, QD
     Route: 048
     Dates: start: 20180118

REACTIONS (4)
  - Fatigue [Not Recovered/Not Resolved]
  - Sleep disorder [Unknown]
  - Facial wasting [Not Recovered/Not Resolved]
  - Dyspnoea [Not Recovered/Not Resolved]
